FAERS Safety Report 17183575 (Version 1)
Quarter: 2019Q4

REPORT INFORMATION
  Report Type: Spontaneous
  Country: CN (occurrence: CN)
  Receive Date: 20191220
  Receipt Date: 20191220
  Transmission Date: 20200122
  Serious: Yes (Other)
  Sender: FDA-Public Use
  Company Number: CN-BAXTER-2019BAX025744

PATIENT
  Age: 61 Year
  Sex: Female
  Weight: 50 kg

DRUGS (4)
  1. ENDOXAN [Suspect]
     Active Substance: CYCLOPHOSPHAMIDE
     Indication: BREAST CANCER FEMALE
     Dosage: 0.9% NS 50ML + CYCLOPHOSPHAMIDE 0.8G
     Route: 041
     Dates: start: 20191125, end: 20191125
  2. STERILE WATER FOR INJECTION [Suspect]
     Active Substance: WATER
     Indication: MEDICATION DILUTION
     Dosage: STERILE WATER FOR INJECTION 80ML + EPIRUBICIN INJECTION 120MG
     Route: 041
     Dates: start: 20191125, end: 20191125
  3. AI DA SHENG [EPIRUBICIN HYDROCHLORIDE] [Suspect]
     Active Substance: EPIRUBICIN HYDROCHLORIDE
     Indication: BREAST CANCER FEMALE
     Dosage: STERILE WATER FOR INJECTION 80 ML + EPIRUBICIN INJECTION 120 MG
     Route: 041
     Dates: start: 20191125, end: 20191125
  4. 0.9% SODIUM CHLORIDE INJECTION [Suspect]
     Active Substance: SODIUM CHLORIDE
     Indication: MEDICATION DILUTION
     Dosage: 0.9% NS 50ML + CYCLOPHOSPHAMIDE 0.8G
     Route: 041
     Dates: start: 20191125, end: 20191125

REACTIONS (1)
  - Bone marrow failure [Recovered/Resolved]

NARRATIVE: CASE EVENT DATE: 20191202
